FAERS Safety Report 15329799 (Version 1)
Quarter: 2018Q3

REPORT INFORMATION
  Report Type: Spontaneous
  Country: US (occurrence: US)
  Receive Date: 20180829
  Receipt Date: 20180829
  Transmission Date: 20181010
  Serious: No
  Sender: FDA-Public Use
  Company Number: US-PFIZER INC-2018244542

PATIENT
  Age: 56 Year
  Sex: Female
  Weight: 66 kg

DRUGS (1)
  1. XELJANZ [Suspect]
     Active Substance: TOFACITINIB CITRATE
     Indication: RHEUMATOID ARTHRITIS
     Dosage: 5 MG, 2X/DAY (60 COUNT)
     Route: 048
     Dates: start: 201804

REACTIONS (7)
  - Finger deformity [Unknown]
  - Loss of personal independence in daily activities [Unknown]
  - Bedridden [Unknown]
  - Hand deformity [Unknown]
  - Swelling face [Unknown]
  - Pain [Unknown]
  - Walking disability [Unknown]

NARRATIVE: CASE EVENT DATE: 201804
